FAERS Safety Report 14956906 (Version 1)
Quarter: 2018Q2

REPORT INFORMATION
  Report Type: Spontaneous
  Country: JP (occurrence: JP)
  Receive Date: 20180531
  Receipt Date: 20180531
  Transmission Date: 20180711
  Serious: Yes (Hospitalization)
  Sender: FDA-Public Use
  Company Number: PHHY2018JP074584

PATIENT
  Age: 80 Year
  Sex: Female

DRUGS (1)
  1. FAMVIR [Suspect]
     Active Substance: FAMCICLOVIR
     Indication: HERPES ZOSTER
     Route: 048

REACTIONS (4)
  - Sepsis [Recovered/Resolved]
  - Anorectal disorder [Recovered/Resolved]
  - Bladder disorder [Recovered/Resolved]
  - Urinary tract infection [Recovered/Resolved]
